FAERS Safety Report 8201165-6 (Version None)
Quarter: 2012Q1

REPORT INFORMATION
  Report Type: 
  Country: None (occurrence: None)
  Receive Date: 20120312
  Receipt Date: 20120301
  Transmission Date: 20120608
  Serious: Yes (Other)
  Sender: FDA-Public Use
  Company Number: PHHY2011CA108764

PATIENT
  Sex: Male

DRUGS (1)
  1. SANDOSTATIN LAR [Suspect]
     Indication: CARCINOID TUMOUR OF THE SMALL BOWEL
     Dosage: 30 MG QMO
     Route: 030
     Dates: start: 20110913

REACTIONS (5)
  - RASH [None]
  - PRURITUS [None]
  - HAEMANGIOMA [None]
  - ERYTHEMA [None]
  - DRY SKIN [None]
